FAERS Safety Report 8464649-1 (Version None)
Quarter: 2012Q2

REPORT INFORMATION
  Report Type: 
  Country: None (occurrence: None)
  Receive Date: 20120620
  Receipt Date: 20120620
  Transmission Date: 20120825
  Serious: Yes (Other)
  Sender: FDA-Public Use
  Company Number: None

PATIENT
  Sex: Female

DRUGS (6)
  1. OMETRAZOLD DR [Concomitant]
  2. METOPROLOL SUCCINATE EXTENDED RELEASE [Concomitant]
  3. ATORVASTATIN [Concomitant]
  4. ETODOLAC [Concomitant]
  5. GLYBURIDE AND METFORMIN HYDROCHLORIDE [Suspect]
     Indication: BLOOD CHOLESTEROL INCREASED
     Dosage: 500 MG 1 A DAY PO
     Route: 048
     Dates: start: 20120521, end: 20120617
  6. RAMIPRIL [Concomitant]

REACTIONS (3)
  - DIZZINESS [None]
  - DIARRHOEA [None]
  - DISORIENTATION [None]
